FAERS Safety Report 11093959 (Version 2)
Quarter: 2015Q2

REPORT INFORMATION
  Report Type: Report from Study
  Country: US (occurrence: US)
  Receive Date: 20150506
  Receipt Date: 20150515
  Transmission Date: 20150821
  Serious: Yes (Hospitalization)
  Sender: FDA-Public Use
  Company Number: US-ABBVIE-15P-163-1383588-00

PATIENT
  Sex: Male
  Weight: 72.19 kg

DRUGS (4)
  1. COREG [Concomitant]
     Active Substance: CARVEDILOL
     Indication: PRODUCT USED FOR UNKNOWN INDICATION
  2. NIFEDIPINE. [Concomitant]
     Active Substance: NIFEDIPINE
     Indication: PRODUCT USED FOR UNKNOWN INDICATION
  3. VIEKIRA PAK [Suspect]
     Active Substance: DASABUVIR\OMBITASVIR\PARITAPREVIR\RITONAVIR
     Indication: HEPATITIS C
     Dosage: 2 PINK COLORED TABLETS IN THE MORNING AND 1 BEIGE COLORED TABLET TWICE DAILY (AM AND PM)
     Route: 048
     Dates: start: 201503, end: 20150425
  4. VIEKIRA PAK [Suspect]
     Active Substance: DASABUVIR\OMBITASVIR\PARITAPREVIR\RITONAVIR
     Dosage: 2 PINK COLORED TABLETS IN THE MORNING AND 1 BEIGE COLORED TABLET TWICE DAILY (AM AND PM)
     Route: 048

REACTIONS (6)
  - Chills [Unknown]
  - Blood pressure decreased [Unknown]
  - Pneumonia [Unknown]
  - Tremor [Unknown]
  - Dysstasia [Unknown]
  - Gait disturbance [Unknown]
